FAERS Safety Report 23840961 (Version 1)
Quarter: 2024Q2

REPORT INFORMATION
  Report Type: Spontaneous
  Country: CN (occurrence: CN)
  Receive Date: 20240510
  Receipt Date: 20240510
  Transmission Date: 20240716
  Serious: Yes (Hospitalization)
  Sender: FDA-Public Use
  Company Number: CN-CHEPLA-2024005681

PATIENT
  Age: 49 Year
  Sex: Female
  Weight: 58 kg

DRUGS (3)
  1. CAPECITABINE [Suspect]
     Active Substance: CAPECITABINE
     Indication: Adenocarcinoma of colon
     Dosage: APPROVAL NO. GYZZ H20073024 ?BID D1-14 Q3W?DAILY DOSE: 3 GRAM
     Route: 048
     Dates: start: 20240417, end: 20240430
  2. OXALIPLATIN [Suspect]
     Active Substance: OXALIPLATIN
     Indication: Adenocarcinoma of colon
     Dosage: APPROVAL NO. GYZZ H20052531  ?ROA:  INTRAVENOUS DRIP
     Route: 042
     Dates: start: 20240417, end: 20240417
  3. MANNITOL [Suspect]
     Active Substance: MANNITOL
     Indication: Adenocarcinoma of colon
     Dates: start: 20240417, end: 20240417

REACTIONS (4)
  - Myelosuppression [Recovered/Resolved]
  - Mental disorder [Unknown]
  - Decreased appetite [Recovering/Resolving]
  - Poor quality sleep [Unknown]

NARRATIVE: CASE EVENT DATE: 20240422
